FAERS Safety Report 25548072 (Version 1)
Quarter: 2025Q3

REPORT INFORMATION
  Report Type: Spontaneous
  Country: EU (occurrence: EU)
  Receive Date: 20250714
  Receipt Date: 20250714
  Transmission Date: 20251021
  Serious: Yes (Other)
  Sender: NOVITIUM PHARMA
  Company Number: EU-NOVITIUMPHARMA-2025BGNVP01588

PATIENT
  Age: 77 Year
  Sex: Female

DRUGS (2)
  1. VALSARTAN [Suspect]
     Active Substance: VALSARTAN
     Indication: Hypertension
  2. MOXONIDINE [Concomitant]
     Active Substance: MOXONIDINE
     Indication: Hypertension

REACTIONS (2)
  - Basal cell carcinoma [Unknown]
  - Product contamination [Unknown]
